FAERS Safety Report 4315586-5 (Version None)
Quarter: 2004Q1

REPORT INFORMATION
  Report Type: 
  Country: None (occurrence: None)
  Receive Date: 20040311
  Receipt Date: 20040311
  Transmission Date: 20041129
  Serious: Yes (Death)
  Sender: FDA-Public Use
  Company Number: None

PATIENT
  Sex: Male
  Weight: 75.9 kg

DRUGS (9)
  1. TARCEVA [Suspect]
     Indication: GLIOBLASTOMA MULTIFORME
     Dosage: 150 MG PO QD
     Route: 048
     Dates: start: 20030627, end: 20040220
  2. DECADRON [Concomitant]
  3. KEPPRA [Concomitant]
  4. NEURONTIN [Concomitant]
  5. PEPCID [Concomitant]
  6. VIOXX [Concomitant]
  7. CARDURA [Concomitant]
  8. COLACE [Concomitant]
  9. CALCIUM [Concomitant]

REACTIONS (1)
  - DEATH [None]
